FAERS Safety Report 23553655 (Version 1)
Quarter: 2024Q1

REPORT INFORMATION
  Report Type: Spontaneous
  Country: US (occurrence: US)
  Receive Date: 20240222
  Receipt Date: 20240222
  Transmission Date: 20240409
  Serious: No
  Sender: FDA-Public Use
  Company Number: US-Calliditas-2024CAL00207

PATIENT
  Age: 42 Year
  Sex: Male
  Weight: 157 kg

DRUGS (1)
  1. TARPEYO [Suspect]
     Active Substance: BUDESONIDE
     Indication: IgA nephropathy
     Route: 048
     Dates: start: 20231101

REACTIONS (2)
  - Peripheral swelling [Unknown]
  - Product dose omission issue [Unknown]
